FAERS Safety Report 24637746 (Version 2)
Quarter: 2024Q4

REPORT INFORMATION
  Report Type: Spontaneous
  Country: US (occurrence: US)
  Receive Date: 20241119
  Receipt Date: 20241121
  Transmission Date: 20250115
  Serious: No
  Sender: ROCHE
  Company Number: US-ROCHE-10000133191

PATIENT
  Age: 1 Year
  Sex: Female
  Weight: 12.6 kg

DRUGS (1)
  1. HEMLIBRA [Suspect]
     Active Substance: EMICIZUMAB-KXWH
     Indication: Factor VIII deficiency
     Dosage: STRENGTH: 60MG/0.4ML, 12MG/0.4ML
     Route: 058

REACTIONS (4)
  - Mouth haemorrhage [Recovered/Resolved]
  - Fall [Unknown]
  - Mouth injury [Recovered/Resolved]
  - Tongue biting [Recovered/Resolved]

NARRATIVE: CASE EVENT DATE: 20241108
